FAERS Safety Report 25804123 (Version 1)
Quarter: 2025Q3

REPORT INFORMATION
  Report Type: Spontaneous
  Country: US (occurrence: US)
  Receive Date: 20250915
  Receipt Date: 20250915
  Transmission Date: 20251020
  Serious: Yes (Other)
  Sender: AMGEN
  Company Number: US-AMGEN-USASP2025182208

PATIENT
  Age: 88 Year
  Sex: Male

DRUGS (1)
  1. BEVACIZUMAB [Suspect]
     Active Substance: BEVACIZUMAB
     Indication: Anaplastic meningioma
     Route: 065
     Dates: start: 202003, end: 2022

REACTIONS (5)
  - Malignant meningioma metastatic [Unknown]
  - Transverse sinus thrombosis [Unknown]
  - B-cell lymphoma [Unknown]
  - Pulmonary embolism [Unknown]
  - Off label use [Unknown]

NARRATIVE: CASE EVENT DATE: 20200301
